FAERS Safety Report 8433453-2 (Version None)
Quarter: 2012Q2

REPORT INFORMATION
  Report Type: 
  Country: None (occurrence: None)
  Receive Date: 20120323
  Receipt Date: 20110706
  Transmission Date: 20120825
  Serious: Yes (Other)
  Sender: FDA-Public Use
  Company Number: 163-21880-11070849

PATIENT
  Age: 66 Year
  Sex: Male

DRUGS (8)
  1. ZOLPIDEM [Concomitant]
  2. MELPHALAN HYDROCHLORIDE [Concomitant]
  3. METCLOPRAMIDE (METOCLOPRAMIDE) (UNKNOWN) [Concomitant]
  4. ATENOLOL [Concomitant]
  5. LENALIDOMIDE [Suspect]
     Indication: MULTIPLE MYELOMA
     Dosage: 15 MG, DAILY FOR 14 DAYS, PO
     Route: 048
     Dates: start: 20110401, end: 20110101
  6. ASPIRIN [Concomitant]
  7. LOVASTATIN (LOVASTATIN) (UNKNOWN) [Concomitant]
  8. WARFARIN SODIUM [Concomitant]

REACTIONS (2)
  - THROMBOCYTOPENIA [None]
  - NEUTROPENIA [None]
